FAERS Safety Report 9579960 (Version 3)
Quarter: 2013Q4

REPORT INFORMATION
  Report Type: Report from Study
  Country: IT (occurrence: IT)
  Receive Date: 20131002
  Receipt Date: 20131004
  Transmission Date: 20140711
  Serious: Yes (Hospitalization)
  Sender: FDA-Public Use
  Company Number: IT-009507513-1307ITA009892

PATIENT
  Age: 60 Year
  Sex: Male
  Weight: 76 kg

DRUGS (6)
  1. PEGINTERFERON ALFA-2B [Suspect]
     Indication: CHRONIC HEPATITIS C
     Dosage: 120 MICROGRAM, QW, FORMULATION: PEN, DOSE AT ONSET OF EVENT 120 MICROGRAM PER WEEK, STRENGTH 120 MCG
     Route: 058
     Dates: start: 20130530
  2. RIBAVIRIN [Suspect]
     Indication: CHRONIC HEPATITIS C
     Dosage: 1000 MG, QD, DOSE AT ONSET OF EVENT 1000 MILLIGRAM PER DAY
     Route: 048
     Dates: start: 20130530
  3. BOCEPREVIR [Suspect]
     Indication: CHRONIC HEPATITIS C
     Dosage: 2400 MG, QD, DOSE AT ONSET OF EVENT  2400 MG PER DAY
     Route: 048
     Dates: start: 20130708
  4. BISOPROLOL [Concomitant]
     Indication: HYPERTENSION
     Dosage: 2.5 MG, QD
     Route: 048
     Dates: start: 20120207
  5. HYDROCHLOROTHIAZIDE (+) ZOFENOPRIL CALCIUM [Concomitant]
     Indication: HYPERTENSION
     Dosage: 30+12.5 MG, QD
     Route: 048
     Dates: start: 20090301
  6. INSULIN HUMAN [Concomitant]
     Indication: DIABETES MELLITUS
     Dosage: 8+10+10+20 UI, QD
     Route: 058
     Dates: start: 20130508

REACTIONS (1)
  - Hepatocellular carcinoma [Recovered/Resolved]
